FAERS Safety Report 16175153 (Version 3)
Quarter: 2019Q2

REPORT INFORMATION
  Report Type: Spontaneous
  Country: JP (occurrence: JP)
  Receive Date: 20190409
  Receipt Date: 20190423
  Transmission Date: 20190711
  Serious: Yes (Hospitalization, Other)
  Sender: FDA-Public Use
  Company Number: JP-PFIZER INC-2019143359

PATIENT
  Age: 70 Year
  Sex: Female

DRUGS (7)
  1. LYRICA [Suspect]
     Active Substance: PREGABALIN
  2. ZOMETA [Concomitant]
     Active Substance: ZOLEDRONIC ACID
     Indication: BREAST CANCER RECURRENT
  3. TRAMAL [Suspect]
     Active Substance: TRAMADOL
  4. FULVESTRANT. [Concomitant]
     Active Substance: FULVESTRANT
     Indication: BREAST CANCER RECURRENT
  5. IBRANCE [Suspect]
     Active Substance: PALBOCICLIB
     Indication: BREAST CANCER RECURRENT
     Dosage: 100 MG, CYCLIC
     Dates: start: 201802
  6. BIOFERMIN[LACTOMIN/AMYLOLYTIC BACILLUS] [Suspect]
     Active Substance: DIETARY SUPPLEMENT\PROBIOTICS
  7. URSO [Suspect]
     Active Substance: URSODIOL

REACTIONS (3)
  - Angina pectoris [Recovered/Resolved]
  - Neutrophil count decreased [Not Recovered/Not Resolved]
  - Hepatic function abnormal [Not Recovered/Not Resolved]

NARRATIVE: CASE EVENT DATE: 20190402
